FAERS Safety Report 6426732-1 (Version None)
Quarter: 2009Q4

REPORT INFORMATION
  Report Type: 
  Country: None (occurrence: None)
  Receive Date: 20091027
  Receipt Date: 20091014
  Transmission Date: 20100525
  Serious: Yes (Other)
  Sender: FDA-Public Use
  Company Number: B0599244A

PATIENT
  Age: 60 Year
  Sex: Male

DRUGS (2)
  1. ONDANSETRON HYDROCHLORIDE [Suspect]
     Dosage: 4 MG, INTRAVENOUS
     Route: 042
  2. GLYCOPYRROLATE INJECTION, USP [Concomitant]

REACTIONS (3)
  - BRADYCARDIA [None]
  - LOSS OF CONSCIOUSNESS [None]
  - RESPIRATORY ARREST [None]
